FAERS Safety Report 8861715 (Version 1)
Quarter: 2012Q4

REPORT INFORMATION
  Report Type: Spontaneous
  Country: US (occurrence: None)
  Receive Date: 20121025
  Receipt Date: 20121025
  Transmission Date: 20130627
  Serious: Yes (Other)
  Sender: FDA-Public Use
  Company Number: None

PATIENT
  Age: 49 Year
  Sex: Female
  Weight: 55 kg

DRUGS (12)
  1. ANAKINRA [Suspect]
     Indication: ARTHRITIS
     Dosage: 100mg Anakinra daily subcustanously
     Route: 058
     Dates: start: 20120405, end: 20120425
  2. ANAKINRA [Suspect]
     Indication: STILL^S DISEASE
     Dosage: 100mg Anakinra daily subcustanously
     Route: 058
     Dates: start: 20120405, end: 20120425
  3. VIVELLE TD (ESTRADIOL) [Concomitant]
  4. PROMETRIUM (PROGESTERONE MICRONIZED) [Concomitant]
  5. KETOROLAC (TORADOL) [Concomitant]
  6. ACETAMINOPHEN [Concomitant]
  7. NORCO (HYDROCODONE-ACETAMINOPHEN) [Concomitant]
  8. ANAKINRA (KINERET) [Concomitant]
  9. SENNOSIDES (SENOKOT-S) [Concomitant]
  10. OMEPRAZOLE [Concomitant]
  11. DOXYCYCLINE (VIBRAMYCIN) [Concomitant]
  12. ONDANSETRON (DISINTEGRATING) (ZOFRAN ODT) [Concomitant]

REACTIONS (7)
  - Hepatic enzyme increased [None]
  - Liver injury [None]
  - Pyrexia [None]
  - Arthralgia [None]
  - Tenosynovitis [None]
  - Rash maculo-papular [None]
  - Rash erythematous [None]
